FAERS Safety Report 22395106 (Version 4)
Quarter: 2023Q2

REPORT INFORMATION
  Report Type: Spontaneous
  Country: US (occurrence: US)
  Receive Date: 20230601
  Receipt Date: 20230616
  Transmission Date: 20230722
  Serious: Yes (Hospitalization)
  Sender: FDA-Public Use
  Company Number: US-VERTEX PHARMACEUTICALS-2023-007815

PATIENT
  Age: 55 Year
  Sex: Female

DRUGS (2)
  1. SYMDEKO [Suspect]
     Active Substance: IVACAFTOR\TEZACAFTOR
     Indication: Cystic fibrosis
     Dosage: 1 DOSAGE FORM (100MG TEZACAFTOR/150MG IVACAFTOR AND 150MG IVACAFTOR), BID
     Route: 048
     Dates: start: 20230213
  2. PREDNISONE [Suspect]
     Active Substance: PREDNISONE
     Indication: Cough
     Dosage: UNK
     Route: 065

REACTIONS (3)
  - Infective pulmonary exacerbation of cystic fibrosis [Recovered/Resolved]
  - Blood glucose increased [Unknown]
  - Initial insomnia [Recovered/Resolved]

NARRATIVE: CASE EVENT DATE: 20230424
